FAERS Safety Report 5114016-3 (Version None)
Quarter: 2006Q3

REPORT INFORMATION
  Report Type: 
  Country: None (occurrence: None)
  Receive Date: 20060925
  Receipt Date: 20060918
  Transmission Date: 20061208
  Serious: Yes (Life-Threatening, Hospitalization, Other)
  Sender: FDA-Public Use
  Company Number: US-NOVOPROD-257031

PATIENT
  Age: 65 Year
  Sex: Male
  Weight: 79 kg

DRUGS (13)
  1. LEVEMIR [Suspect]
     Indication: INSULIN-REQUIRING TYPE II DIABETES MELLITUS
     Dosage: 12-15 IU, QD
     Route: 058
     Dates: start: 20060401
  2. APIDRA [Suspect]
     Indication: INSULIN-REQUIRING TYPE II DIABETES MELLITUS
     Dosage: 12-25 IU, QD
     Route: 058
     Dates: start: 20060701
  3. NAPROXEN [Suspect]
     Indication: TENDONITIS
     Dosage: UNK, UNK
     Route: 048
     Dates: start: 20060817, end: 20060830
  4. GLYBURIDE [Concomitant]
     Indication: DIABETES MELLITUS
     Dosage: 5 MG, BID
     Route: 048
  5. FUROSEMIDE [Concomitant]
     Indication: CARDIAC FAILURE
     Route: 048
  6. LANOXIN [Concomitant]
     Indication: CARDIAC FAILURE
     Route: 048
  7. LIPITOR [Concomitant]
     Indication: HYPERCHOLESTEROLAEMIA
     Route: 048
  8. INSPRA [Concomitant]
     Indication: HYPERTENSION
     Route: 048
  9. COREG [Concomitant]
     Indication: HYPERTENSION
     Route: 048
  10. WARFARIN SODIUM [Concomitant]
     Indication: PROPHYLAXIS
     Route: 048
  11. LISINOPRIL [Concomitant]
     Indication: HYPERTENSION
     Route: 048
  12. SLOW-K [Concomitant]
     Indication: MINERAL SUPPLEMENTATION
     Route: 048
  13. KLOR-CON [Concomitant]
     Indication: MINERAL SUPPLEMENTATION
     Dosage: UNK, UNK
     Route: 048

REACTIONS (9)
  - AMNESIA [None]
  - CONTUSION [None]
  - DIZZINESS [None]
  - DRUG EFFECT INCREASED [None]
  - DRUG INTERACTION [None]
  - FALL [None]
  - HAEMORRHAGE [None]
  - HEAD INJURY [None]
  - HYPOGLYCAEMIC COMA [None]
